FAERS Safety Report 9067020 (Version 1)
Quarter: 2013Q1

REPORT INFORMATION
  Report Type: Spontaneous
  Country: ES (occurrence: ES)
  Receive Date: 20130214
  Receipt Date: 20130214
  Transmission Date: 20140127
  Serious: Yes (Life-Threatening, Hospitalization)
  Sender: FDA-Public Use
  Company Number: ES-JNJFOC-20130202546

PATIENT
  Age: 47 None
  Sex: Female
  Weight: 46 kg

DRUGS (6)
  1. STELARA [Suspect]
     Indication: DERMATITIS ATOPIC
     Route: 058
     Dates: start: 20120816
  2. STELARA [Suspect]
     Indication: DERMATITIS ATOPIC
     Dosage: LAST INJECTION BEFORE THE PATIENT EXPERIENCED ANAPHYLACTIC SHOCK
     Route: 058
     Dates: start: 20120913
  3. STELARA [Suspect]
     Indication: DERMATITIS ATOPIC
     Route: 058
  4. CONTRAST MEDIUM [Suspect]
     Indication: COMPUTERISED TOMOGRAM
     Route: 065
     Dates: start: 20121016, end: 20121016
  5. DACORTIN [Concomitant]
     Indication: DERMATITIS ATOPIC
     Route: 048
     Dates: start: 20100622, end: 20121028
  6. CEMIDON [Concomitant]
     Indication: LATENT TUBERCULOSIS
     Route: 048
     Dates: start: 20120827

REACTIONS (1)
  - Anaphylactic shock [Recovered/Resolved]
